FAERS Safety Report 21818964 (Version 1)
Quarter: 2023Q1

REPORT INFORMATION
  Report Type: Report from Study
  Country: GB (occurrence: GB)
  Receive Date: 20230104
  Receipt Date: 20230104
  Transmission Date: 20230417
  Serious: Yes (Hospitalization)
  Sender: FDA-Public Use
  Company Number: GB-JNJFOC-20220724967

PATIENT
  Age: 74 Year
  Sex: Male
  Weight: 91.7 kg

DRUGS (1)
  1. ERDAFITINIB [Suspect]
     Active Substance: ERDAFITINIB
     Indication: Transitional cell carcinoma
     Route: 048
     Dates: start: 20220512

REACTIONS (1)
  - Cellulitis [Recovered/Resolved]

NARRATIVE: CASE EVENT DATE: 20220710
